FAERS Safety Report 10216401 (Version 29)
Quarter: 2020Q4

REPORT INFORMATION
  Report Type: Report from Study
  Country: CA (occurrence: CA)
  Receive Date: 20140604
  Receipt Date: 20201129
  Transmission Date: 20210113
  Serious: Yes (Hospitalization, Other)
  Sender: FDA-Public Use
  Company Number: PHHY2009CA22123

PATIENT
  Age: 71 Year
  Sex: Male

DRUGS (7)
  1. SANDOSTATIN LAR DEPOT [Suspect]
     Active Substance: OCTREOTIDE ACETATE
     Indication: PANCREATITIS
     Dosage: 20 MG, QMO
     Route: 030
     Dates: start: 20081217, end: 20140530
  2. LEVEMIR [Concomitant]
     Active Substance: INSULIN DETEMIR
     Indication: DIABETES MELLITUS
     Dosage: UNK
     Route: 065
  3. TRESIBA [Concomitant]
     Active Substance: INSULIN DEGLUDEC
     Indication: DIABETES MELLITUS
     Dosage: 30 OT, QD
     Route: 065
  4. CANDESARTAN. [Concomitant]
     Active Substance: CANDESARTAN
     Indication: PRODUCT USED FOR UNKNOWN INDICATION
     Dosage: UNK
     Route: 065
  5. SANDOSTATIN LAR DEPOT [Suspect]
     Active Substance: OCTREOTIDE ACETATE
     Dosage: 30 MG, QMO
     Route: 030
     Dates: start: 20171025
  6. SANDOSTATIN LAR DEPOT [Suspect]
     Active Substance: OCTREOTIDE ACETATE
     Dosage: 30 MG, QMO
     Route: 030
     Dates: start: 20081217
  7. MORPHINE [Suspect]
     Active Substance: MORPHINE
     Indication: PRODUCT USED FOR UNKNOWN INDICATION
     Dosage: UNK
     Route: 065

REACTIONS (44)
  - Coronary artery occlusion [Unknown]
  - Muscle spasms [Recovering/Resolving]
  - Myocardial infarction [Unknown]
  - Dizziness [Recovered/Resolved]
  - Cachexia [Unknown]
  - Heart rate increased [Unknown]
  - Nasopharyngitis [Recovering/Resolving]
  - Blood pressure fluctuation [Unknown]
  - Asthenia [Unknown]
  - Arteriosclerosis [Unknown]
  - Injection site pain [Unknown]
  - Erythema [Unknown]
  - Fatigue [Unknown]
  - Malaise [Unknown]
  - Blood pressure increased [Unknown]
  - Blood pressure decreased [Recovering/Resolving]
  - Influenza [Recovered/Resolved]
  - Bronchitis [Unknown]
  - Haematoma [Unknown]
  - Diabetic coma [Recovered/Resolved]
  - Troponin increased [Unknown]
  - Abdominal pain upper [Unknown]
  - Nausea [Unknown]
  - Chest pain [Unknown]
  - Pancreatitis chronic [Unknown]
  - Hypoaesthesia [Unknown]
  - Injection site mass [Unknown]
  - Body temperature decreased [Unknown]
  - Fall [Unknown]
  - Oropharyngeal pain [Recovering/Resolving]
  - Thrombosis [Unknown]
  - Limb injury [Unknown]
  - Blood glucose abnormal [Unknown]
  - Diarrhoea [Recovering/Resolving]
  - Back pain [Recovering/Resolving]
  - Malaise [Recovered/Resolved]
  - Pancreatitis [Unknown]
  - Heart rate decreased [Unknown]
  - Muscle rigidity [Unknown]
  - Muscle disorder [Unknown]
  - Somnolence [Unknown]
  - Cardiac disorder [Unknown]
  - Nasal congestion [Recovering/Resolving]
  - Product use in unapproved indication [Unknown]

NARRATIVE: CASE EVENT DATE: 20140527
